FAERS Safety Report 24834709 (Version 1)
Quarter: 2025Q1

REPORT INFORMATION
  Report Type: Report from Study
  Country: CA (occurrence: CA)
  Receive Date: 20250113
  Receipt Date: 20250113
  Transmission Date: 20250409
  Serious: Yes (Other)
  Sender: TAKEDA
  Company Number: CA-TAKEDA-2025TUS003347

PATIENT
  Sex: Female

DRUGS (11)
  1. VEDOLIZUMAB [Suspect]
     Active Substance: VEDOLIZUMAB
     Indication: Crohn^s disease
  2. SYMBICORT [Concomitant]
     Active Substance: BUDESONIDE\FORMOTEROL FUMARATE DIHYDRATE
     Dosage: UNK UNK, BID
  3. PENTASA [Concomitant]
     Active Substance: MESALAMINE
     Dosage: UNK UNK, QD
  4. FUROSEMIDE [Concomitant]
     Active Substance: FUROSEMIDE
  5. BISOPROLOL [Concomitant]
     Active Substance: BISOPROLOL
  6. EZETIMIBE [Concomitant]
     Active Substance: EZETIMIBE
  7. CLOPIDOGREL [Concomitant]
     Active Substance: CLOPIDOGREL BISULFATE
  8. FOLIC ACID [Concomitant]
     Active Substance: FOLIC ACID
  9. TYLENOL [Concomitant]
     Active Substance: ACETAMINOPHEN
  10. GABAPENTIN [Concomitant]
     Active Substance: GABAPENTIN
  11. ALBUTEROL [Concomitant]
     Active Substance: ALBUTEROL

REACTIONS (1)
  - Pneumonia [Recovered/Resolved]
